FAERS Safety Report 9785089 (Version 2)
Quarter: 2014Q1

REPORT INFORMATION
  Report Type: Report from Study
  Country: US (occurrence: US)
  Receive Date: 20131227
  Receipt Date: 20140326
  Transmission Date: 20141002
  Serious: Yes (Death)
  Sender: FDA-Public Use
  Company Number: US-ROCHE-1326247

PATIENT
  Age: 59 Year
  Sex: Female
  Weight: 75.5 kg

DRUGS (9)
  1. AVASTIN [Suspect]
     Indication: METASTATIC NEOPLASM
     Route: 065
     Dates: start: 20130131
  2. AVASTIN [Suspect]
     Indication: HEPATIC CANCER
  3. FOLINIC ACID [Concomitant]
  4. FLUOROURACIL [Concomitant]
  5. OXALIPLATIN [Concomitant]
  6. CARBOPLATIN [Concomitant]
  7. TAXOTERE [Concomitant]
  8. GEMZAR [Concomitant]
  9. ABRAXANE [Concomitant]

REACTIONS (5)
  - Death [Fatal]
  - Rectal haemorrhage [Unknown]
  - Painful defaecation [Unknown]
  - Haematochezia [Unknown]
  - Jaundice [Unknown]
